FAERS Safety Report 8166197-5 (Version None)
Quarter: 2012Q1

REPORT INFORMATION
  Report Type: 
  Country: None (occurrence: None)
  Receive Date: 20120227
  Receipt Date: 20110429
  Transmission Date: 20120608
  Serious: No
  Sender: FDA-Public Use
  Company Number: US-MYLANLABS-2011S1008879

PATIENT
  Age: 13 Year
  Sex: Male

DRUGS (2)
  1. AMNESTEEM [Suspect]
     Indication: ACNE
     Route: 048
     Dates: start: 20110401, end: 20110427
  2. ACANYA [Concomitant]
     Indication: ACNE

REACTIONS (4)
  - DIARRHOEA [None]
  - VISUAL IMPAIRMENT [None]
  - DIZZINESS [None]
  - NAUSEA [None]
